FAERS Safety Report 7525600-1 (Version None)
Quarter: 2011Q2

REPORT INFORMATION
  Report Type: 
  Country: None (occurrence: None)
  Receive Date: 20110606
  Receipt Date: 20110523
  Transmission Date: 20111010
  Serious: Yes (Hospitalization)
  Sender: FDA-Public Use
  Company Number: PHHY2011US18498

PATIENT
  Sex: Female

DRUGS (3)
  1. RECLAST [Suspect]
     Indication: OSTEOPOROSIS
     Dosage: 5 MG
     Route: 042
     Dates: start: 20110301
  2. LEXAPRO [Concomitant]
  3. STALEVO 100 [Concomitant]

REACTIONS (9)
  - ARTHRALGIA [None]
  - BACK PAIN [None]
  - DEHYDRATION [None]
  - SKIN DISCOLOURATION [None]
  - BURNING SENSATION [None]
  - INFLUENZA LIKE ILLNESS [None]
  - HEADACHE [None]
  - MOVEMENT DISORDER [None]
  - PAIN [None]
